FAERS Safety Report 6821576-0 (Version None)
Quarter: 2010Q3

REPORT INFORMATION
  Report Type: 
  Country: None (occurrence: None)
  Receive Date: 20100707
  Receipt Date: 20090420
  Transmission Date: 20110219
  Serious: No
  Sender: FDA-Public Use
  Company Number: US-PFIZER INC-2009203983

PATIENT
  Sex: Male
  Weight: 68.038 kg

DRUGS (2)
  1. ZOLOFT [Suspect]
     Indication: ANXIETY
     Dosage: UNIT DOSE: UNKNOWN;
     Dates: start: 20090401, end: 20090419
  2. ZOLOFT [Suspect]
     Indication: DEPRESSION

REACTIONS (3)
  - FEAR [None]
  - FEELING ABNORMAL [None]
  - READING DISORDER [None]
